FAERS Safety Report 24805831 (Version 1)
Quarter: 2025Q1

REPORT INFORMATION
  Report Type: Spontaneous
  Country: FR (occurrence: FR)
  Receive Date: 20250103
  Receipt Date: 20250103
  Transmission Date: 20250409
  Serious: Yes (Death, Other)
  Sender: MYLAN
  Company Number: FR-AUROBINDO-AUR-APL-2024-062734

PATIENT
  Age: 71 Year
  Sex: Female

DRUGS (5)
  1. BORTEZOMIB [Suspect]
     Active Substance: BORTEZOMIB
     Indication: Blastic plasmacytoid dendritic cell neoplasia
     Route: 058
  2. DEXAMETHASONE [Suspect]
     Active Substance: DEXAMETHASONE
     Indication: Blastic plasmacytoid dendritic cell neoplasia
     Dosage: 20 MILLIGRAM, QW (EVERY WEEK)
     Route: 065
  3. METHOTREXATE [Suspect]
     Active Substance: METHOTREXATE
     Indication: Prophylaxis
     Route: 037
  4. VENETOCLAX [Suspect]
     Active Substance: VENETOCLAX
     Indication: Blastic plasmacytoid dendritic cell neoplasia
     Dosage: 400 MILLIGRAM, QD (DAILY)
     Route: 048
  5. CYTARABINE [Suspect]
     Active Substance: CYTARABINE
     Indication: Prophylaxis
     Route: 065

REACTIONS (1)
  - Disease recurrence [Fatal]
